FAERS Safety Report 6506882-1 (Version None)
Quarter: 2009Q4

REPORT INFORMATION
  Report Type: 
  Country: None (occurrence: None)
  Receive Date: 20091221
  Receipt Date: 20091214
  Transmission Date: 20100525
  Serious: Yes (Other)
  Sender: FDA-Public Use
  Company Number: FR-PFIZER INC-2009309713

PATIENT
  Age: 82 Year

DRUGS (2)
  1. AROMASINE [Suspect]
     Dosage: UNK
     Dates: start: 20090101, end: 20090901
  2. AROMASINE [Suspect]
     Dosage: UNK
     Dates: start: 20091213

REACTIONS (1)
  - LOSS OF CONSCIOUSNESS [None]
